FAERS Safety Report 5286525-8 (Version None)
Quarter: 2007Q2

REPORT INFORMATION
  Report Type: 
  Country: None (occurrence: None)
  Receive Date: 20070404
  Receipt Date: 20070323
  Transmission Date: 20071010
  Serious: Yes (Other)
  Sender: FDA-Public Use
  Company Number: DE-SANOFI-SYNTHELABO-A04200600439

PATIENT
  Sex: Female

DRUGS (3)
  1. PLEON RA [Suspect]
     Indication: RHEUMATOID ARTHRITIS
     Dosage: 2 G
     Route: 048
     Dates: start: 20051214, end: 20060501
  2. QUENSYL [Suspect]
     Indication: RHEUMATOID ARTHRITIS
     Dosage: 200 MG
     Route: 048
     Dates: start: 20051201, end: 20060403
  3. PREDNISOLONE [Concomitant]
     Indication: MUSCULOSKELETAL PAIN
     Dosage: 5 MG
     Route: 048

REACTIONS (2)
  - DRUG EXPOSURE DURING PREGNANCY [None]
  - UTERINE LEIOMYOMA [None]
